FAERS Safety Report 20493985 (Version 1)
Quarter: 2022Q1

REPORT INFORMATION
  Report Type: Spontaneous
  Country: CN (occurrence: CN)
  Receive Date: 20220221
  Receipt Date: 20220221
  Transmission Date: 20220424
  Serious: Yes (Hospitalization)
  Sender: FDA-Public Use
  Company Number: CN-LUPIN PHARMACEUTICALS INC.-2022-02207

PATIENT
  Age: 31 Year
  Sex: Female

DRUGS (3)
  1. QUETIAPINE FUMARATE [Suspect]
     Active Substance: QUETIAPINE FUMARATE
     Indication: Psychotic symptom
     Dosage: 0.3 GRAM, BID
     Route: 065
     Dates: start: 2019
  2. RISPERIDONE [Suspect]
     Active Substance: RISPERIDONE
     Indication: Psychotic symptom
     Dosage: 1 MG, BID
     Route: 065
     Dates: start: 2019
  3. HUMAN IMMUNOGLOBULIN G [Suspect]
     Active Substance: HUMAN IMMUNOGLOBULIN G
     Indication: Encephalitis autoimmune
     Dosage: 20 GRAM
     Route: 065
     Dates: start: 2019

REACTIONS (1)
  - Drug ineffective [Unknown]

NARRATIVE: CASE EVENT DATE: 20190101
